FAERS Safety Report 10700828 (Version 1)
Quarter: 2015Q1

REPORT INFORMATION
  Report Type: Spontaneous
  Country: TR (occurrence: TR)
  Receive Date: 20150109
  Receipt Date: 20150109
  Transmission Date: 20150721
  Serious: Yes (Death)
  Sender: FDA-Public Use
  Company Number: TR-JNJFOC-20141220797

PATIENT
  Age: 69 Year
  Sex: Male
  Weight: 60 kg

DRUGS (5)
  1. ALDACTONE [Concomitant]
     Active Substance: SPIRONOLACTONE
     Route: 065
  2. DELIX [Concomitant]
     Active Substance: RAMIPRIL
     Route: 065
  3. DESAL [Concomitant]
     Active Substance: FUROSEMIDE
     Route: 065
  4. XARELTO [Suspect]
     Active Substance: RIVAROXABAN
     Indication: ATRIAL FIBRILLATION
     Route: 048
     Dates: start: 20141011
  5. XARELTO [Suspect]
     Active Substance: RIVAROXABAN
     Indication: CEREBROVASCULAR ACCIDENT PROPHYLAXIS
     Route: 048
     Dates: start: 20141011

REACTIONS (3)
  - Peripheral embolism [Fatal]
  - Cerebral artery embolism [Fatal]
  - Cerebral haemorrhage [Fatal]

NARRATIVE: CASE EVENT DATE: 20141117
